FAERS Safety Report 8552169-5 (Version None)
Quarter: 2012Q3

REPORT INFORMATION
  Report Type: 
  Country: None (occurrence: None)
  Receive Date: 20120731
  Receipt Date: 20120718
  Transmission Date: 20120928
  Serious: No
  Sender: FDA-Public Use
  Company Number: US-BIOGENIDEC-2012BI026164

PATIENT
  Sex: Female

DRUGS (1)
  1. AVONEX [Suspect]
     Indication: MULTIPLE SCLEROSIS
     Route: 030

REACTIONS (11)
  - INTERVERTEBRAL DISC PROTRUSION [None]
  - ARTHRITIS [None]
  - TENDONITIS [None]
  - LOSS OF CONSCIOUSNESS [None]
  - PAIN IN EXTREMITY [None]
  - EYE DISORDER [None]
  - GOUT [None]
  - HYPERTENSION [None]
  - INFLUENZA LIKE ILLNESS [None]
  - PAIN [None]
  - CONSTIPATION [None]
